FAERS Safety Report 9711733 (Version 2)
Quarter: 2013Q4

REPORT INFORMATION
  Report Type: Spontaneous
  Country: US (occurrence: US)
  Receive Date: 20131126
  Receipt Date: 20131126
  Transmission Date: 20140711
  Serious: Yes (Disabling)
  Sender: FDA-Public Use
  Company Number: US-BRISTOL-MYERS SQUIBB COMPANY-18792978

PATIENT
  Age: 62 Year
  Sex: Male
  Weight: 97.5 kg

DRUGS (6)
  1. BYDUREON [Suspect]
     Indication: TYPE 2 DIABETES MELLITUS
     Dosage: NO OF INJ:3
     Route: 058
  2. HUMALOG [Concomitant]
  3. LANTUS [Concomitant]
  4. METFORMIN HCL [Concomitant]
  5. LISINOPRIL [Concomitant]
  6. FOLIC ACID [Concomitant]

REACTIONS (2)
  - Abdominal pain upper [Unknown]
  - Abdominal distension [Unknown]
